FAERS Safety Report 5616071-0 (Version None)
Quarter: 2008Q1

REPORT INFORMATION
  Report Type: 
  Country: None (occurrence: None)
  Receive Date: 20080206
  Receipt Date: 20080125
  Transmission Date: 20080703
  Serious: Yes (Other)
  Sender: FDA-Public Use
  Company Number: GB-PFIZER INC-2008000235

PATIENT
  Age: 45 Year
  Sex: Male

DRUGS (2)
  1. CHANTIX [Suspect]
     Indication: SMOKING CESSATION THERAPY
     Route: 048
     Dates: start: 20071026, end: 20071204
  2. GENTISONE HC [Concomitant]
     Indication: OTITIS EXTERNA
     Route: 061
     Dates: start: 20071008, end: 20071018

REACTIONS (2)
  - MOOD SWINGS [None]
  - PARANOIA [None]
